FAERS Safety Report 10877853 (Version 3)
Quarter: 2015Q1

REPORT INFORMATION
  Report Type: Report from Study
  Country: BR (occurrence: BR)
  Receive Date: 20150302
  Receipt Date: 20150322
  Transmission Date: 20150721
  Serious: Yes (Other)
  Sender: FDA-Public Use
  Company Number: PHHY2015BR023362

PATIENT
  Age: 46 Year
  Sex: Male
  Weight: 89 kg

DRUGS (4)
  1. SANDOSTATIN LAR DEPOT [Suspect]
     Active Substance: OCTREOTIDE ACETATE
     Indication: PITUITARY TUMOUR
     Dosage: 1 DF, QMO
     Route: 030
     Dates: start: 201209
  2. PURAN [Concomitant]
     Active Substance: LEVOTHYROXINE SODIUM
     Indication: PITUITARY TUMOUR
     Dosage: 1 DF, QD
     Route: 048
     Dates: start: 2012
  3. HIDROCORTISONA//HYDROCORTISONE [Concomitant]
     Indication: PITUITARY TUMOUR
     Dosage: 2 DF, QD
     Route: 048
     Dates: start: 2012
  4. HIDANTAL [Concomitant]
     Active Substance: PHENYTOIN SODIUM
     Indication: SEIZURE
     Dosage: 2 DF, QD
     Route: 048
     Dates: start: 2012

REACTIONS (3)
  - Pain [Recovering/Resolving]
  - Meniscus injury [Recovering/Resolving]
  - Synovial cyst [Recovering/Resolving]

NARRATIVE: CASE EVENT DATE: 20150204
